FAERS Safety Report 4704451-7 (Version None)
Quarter: 2005Q2

REPORT INFORMATION
  Report Type: 
  Country: None (occurrence: None)
  Receive Date: 20050630
  Receipt Date: 20050630
  Transmission Date: 20051028
  Serious: No
  Sender: FDA-Public Use
  Company Number: None

PATIENT
  Sex: Male
  Weight: 78.2 kg

DRUGS (4)
  1. CISPLATIN [Suspect]
     Dosage: EVERY THREE WEEKS
     Dates: start: 20050328
  2. CARBOPLATIN [Suspect]
  3. FLUOROURACIL [Suspect]
  4. RADIATION [Suspect]

REACTIONS (5)
  - NAUSEA [None]
  - PYREXIA [None]
  - STOMATITIS [None]
  - VOMITING [None]
  - WHITE BLOOD CELL COUNT DECREASED [None]
